FAERS Safety Report 13895215 (Version 3)
Quarter: 2017Q4

REPORT INFORMATION
  Report Type: Spontaneous
  Country: US (occurrence: US)
  Receive Date: 20170823
  Receipt Date: 20171006
  Transmission Date: 20180320
  Serious: Yes (Hospitalization)
  Sender: FDA-Public Use
  Company Number: US-UNITED THERAPEUTICS-UNT-2017-012219

PATIENT
  Age: 44 Year
  Sex: Female
  Weight: 44.44 kg

DRUGS (3)
  1. REMODULIN [Suspect]
     Active Substance: TREPROSTINIL
     Indication: PULMONARY ARTERIAL HYPERTENSION
     Dosage: 0.060 ?G/KG, CONTINUING
     Route: 041
     Dates: start: 20131119
  2. REMODULIN [Suspect]
     Active Substance: TREPROSTINIL
     Indication: PULMONARY HYPERTENSION
  3. OPSUMIT [Concomitant]
     Active Substance: MACITENTAN
     Indication: PRODUCT USED FOR UNKNOWN INDICATION

REACTIONS (7)
  - Rectal haemorrhage [Unknown]
  - Internal haemorrhage [Unknown]
  - Renal impairment [Unknown]
  - Weight decreased [Unknown]
  - Biopsy liver [Unknown]
  - Gallbladder disorder [Unknown]
  - Overdose [Unknown]

NARRATIVE: CASE EVENT DATE: 20170815
